FAERS Safety Report 14064445 (Version 1)
Quarter: 2017Q4

REPORT INFORMATION
  Report Type: Spontaneous
  Country: GB (occurrence: GB)
  Receive Date: 20171009
  Receipt Date: 20171009
  Transmission Date: 20180321
  Serious: Yes (Disabling)
  Sender: FDA-Public Use
  Company Number: GB-B. BRAUN MEDICAL INC.-2029326

PATIENT
  Age: 39 Year
  Sex: Female

DRUGS (28)
  1. DAPTOMYCIN. [Concomitant]
     Active Substance: DAPTOMYCIN
  2. FORCEVAL [Concomitant]
     Active Substance: FOLIC ACID\IRON\MINERALS\VITAMINS
  3. MAGNASPARTATE [Concomitant]
  4. MEROPENEM. [Concomitant]
     Active Substance: MEROPENEM
  5. PREGABALIN. [Concomitant]
     Active Substance: PREGABALIN
  6. METRONIDAZOLE. [Suspect]
     Active Substance: METRONIDAZOLE
     Indication: INFECTION
     Route: 042
     Dates: start: 20160121
  7. BIOTENE DRY MOUTH [Concomitant]
  8. DOUBLEBASE [Concomitant]
     Active Substance: ISOPROPYL MYRISTATE\PARAFFIN
  9. EXEMESTANE. [Concomitant]
     Active Substance: EXEMESTANE
  10. KETAMINE HYDROCHLORIDE. [Concomitant]
     Active Substance: KETAMINE HYDROCHLORIDE
  11. SEVREDOL [Concomitant]
     Active Substance: MORPHINE
  12. AMITRIPTYLINE HYDROCHLORIDE. [Concomitant]
     Active Substance: AMITRIPTYLINE HYDROCHLORIDE
  13. PARACETAMOL [Concomitant]
     Active Substance: ACETAMINOPHEN
  14. CLONAZEPAM. [Concomitant]
     Active Substance: CLONAZEPAM
  15. CYCLIZINE [Concomitant]
     Active Substance: CYCLIZINE
  16. ONDANSETRON [Concomitant]
     Active Substance: ONDANSETRON
  17. TRIMETHOPRIM. [Concomitant]
     Active Substance: TRIMETHOPRIM
     Route: 048
  18. ADCAL-D3 [Concomitant]
     Active Substance: CALCIUM CARBONATE\CHOLECALCIFEROL
  19. DIAMORPHINE [Concomitant]
     Active Substance: DIAMORPHINE
  20. ENOXAPARIN SODIUM. [Concomitant]
     Active Substance: ENOXAPARIN SODIUM
     Route: 058
  21. LANSOPRAZOLE. [Concomitant]
     Active Substance: LANSOPRAZOLE
  22. METOCLOPRAMIDE. [Concomitant]
     Active Substance: METOCLOPRAMIDE
  23. MST CONTINUS [Concomitant]
     Active Substance: MORPHINE SULFATE
  24. SODIUM DOCUSATE [Concomitant]
     Active Substance: DOCUSATE SODIUM
  25. CLINDAMYCIN. [Concomitant]
     Active Substance: CLINDAMYCIN
  26. DEXAMETHASONE. [Concomitant]
     Active Substance: DEXAMETHASONE
  27. FLUCONAZOLE. [Concomitant]
     Active Substance: FLUCONAZOLE
     Route: 048
  28. TEICOPLANIN [Concomitant]
     Active Substance: TEICOPLANIN

REACTIONS (2)
  - Neuropathy peripheral [Not Recovered/Not Resolved]
  - Peroneal nerve palsy [Not Recovered/Not Resolved]

NARRATIVE: CASE EVENT DATE: 20160211
